FAERS Safety Report 8849393 (Version 1)
Quarter: 2012Q4

REPORT INFORMATION
  Report Type: Spontaneous
  Country: US (occurrence: None)
  Receive Date: 20121017
  Receipt Date: 20121017
  Transmission Date: 20130627
  Serious: Yes (Hospitalization, Disabling, Other)
  Sender: FDA-Public Use
  Company Number: AUR-APL-2012-04409

PATIENT
  Age: 39 Year
  Sex: Male

DRUGS (6)
  1. LAMOTRIGINE [Suspect]
     Indication: EPILEPSY
     Dates: start: 2006, end: 200911
  2. LAMOTRIGINE [Suspect]
     Indication: EPILEPSY
     Dates: start: 201005, end: 20110617
  3. LAMOTRIGINE [Suspect]
     Indication: EPILEPSY
     Dates: end: 201108
  4. PHENYTOIN [Suspect]
     Dates: start: 1985, end: 2006
  5. PHENYTOIN [Suspect]
     Dates: start: 200911, end: 201005
  6. PHENYTOIN [Suspect]
     Dates: start: 20110617

REACTIONS (9)
  - Lupus-like syndrome [None]
  - Arthralgia [None]
  - Antinuclear antibody positive [None]
  - Convulsion [None]
  - Joint swelling [None]
  - Erythema [None]
  - Lupus-like syndrome [None]
  - Dizziness [None]
  - Status epilepticus [None]
